FAERS Safety Report 9856750 (Version 1)
Quarter: 2014Q1

REPORT INFORMATION
  Report Type: Spontaneous
  Country: JP (occurrence: JP)
  Receive Date: 20140130
  Receipt Date: 20140130
  Transmission Date: 20141002
  Serious: Yes (Other)
  Sender: FDA-Public Use
  Company Number: JP-GLAXOSMITHKLINE-B0964817A

PATIENT
  Sex: Male

DRUGS (1)
  1. FLUTIDE [Suspect]
     Indication: ASTHMA
     Dosage: 200MCG TWICE PER DAY
     Route: 055

REACTIONS (4)
  - Gastritis fungal [Unknown]
  - Abdominal pain upper [Unknown]
  - Glossodynia [Unknown]
  - Oral candidiasis [Unknown]
